FAERS Safety Report 15082460 (Version 1)
Quarter: 2018Q2

REPORT INFORMATION
  Report Type: Spontaneous
  Country: US (occurrence: US)
  Receive Date: 20180628
  Receipt Date: 20180628
  Transmission Date: 20180711
  Serious: Yes (Other)
  Sender: FDA-Public Use
  Company Number: US-INSYS THERAPEUTICS, INC-INS201806-000226

PATIENT

DRUGS (2)
  1. UNSPECIFIED NARCOTICS [Suspect]
     Active Substance: UNSPECIFIED INGREDIENT
  2. SUBSYS [Suspect]
     Active Substance: FENTANYL
     Indication: PRODUCT USED FOR UNKNOWN INDICATION
     Route: 060

REACTIONS (3)
  - Injury [Unknown]
  - Hyperaesthesia [Unknown]
  - Drug dependence [Unknown]
